FAERS Safety Report 4798416-7 (Version None)
Quarter: 2005Q4

REPORT INFORMATION
  Report Type: 
  Country: None (occurrence: None)
  Receive Date: 20051011
  Receipt Date: 20050930
  Transmission Date: 20060501
  Serious: Yes (Hospitalization, Other)
  Sender: FDA-Public Use
  Company Number: KII-2005-0018897

PATIENT
  Age: 22 Year
  Sex: Female

DRUGS (5)
  1. OXYCONTIN [Suspect]
  2. PHENCYCLIDINE (PHENCYCLIDINE) [Suspect]
     Indication: INTENTIONAL DRUG MISUSE
  3. BARBITURATES () [Suspect]
  4. ETHANOL (ETHANOL) [Suspect]
  5. COCAINE (COCAINE) [Suspect]
     Indication: INTENTIONAL DRUG MISUSE

REACTIONS (5)
  - ABNORMAL BEHAVIOUR [None]
  - AGGRESSION [None]
  - AGITATION [None]
  - HEART RATE INCREASED [None]
  - POLYSUBSTANCE ABUSE [None]
